FAERS Safety Report 10487677 (Version 1)
Quarter: 2014Q4

REPORT INFORMATION
  Report Type: Report from Study
  Country: US (occurrence: US)
  Receive Date: 20141001
  Receipt Date: 20141001
  Transmission Date: 20150528
  Serious: Yes (Death, Life-Threatening, Hospitalization, Other)
  Sender: FDA-Public Use
  Company Number: US-ELI_LILLY_AND_COMPANY-US201409009942

PATIENT
  Age: 71 Year
  Sex: Female
  Weight: 66.85 kg

DRUGS (26)
  1. PREDNISONE. [Concomitant]
     Active Substance: PREDNISONE
     Dosage: UNK
     Dates: start: 20130912
  2. IBUPROFEN. [Concomitant]
     Active Substance: IBUPROFEN
  3. LANTUS [Concomitant]
     Active Substance: INSULIN GLARGINE
     Dosage: UNK
     Dates: start: 20131115
  4. LORAZEPAM. [Concomitant]
     Active Substance: LORAZEPAM
     Dosage: UNK
     Dates: start: 20131122
  5. ALBUTEROL. [Concomitant]
     Active Substance: ALBUTEROL
  6. ENALAPRIL [Concomitant]
     Active Substance: ENALAPRIL
     Dosage: UNK
     Dates: start: 20131118
  7. LEVOTHYROXINE [Concomitant]
     Active Substance: LEVOTHYROXINE
     Dosage: UNK
     Dates: start: 20131122
  8. MEGESTROL [Concomitant]
     Active Substance: MEGESTROL
     Dosage: UNK
     Dates: start: 20140113
  9. TRAMADOL [Concomitant]
     Active Substance: TRAMADOL
     Dosage: UNK
     Dates: start: 20140106
  10. PIOGLITAZONE [Concomitant]
     Active Substance: PIOGLITAZONE
  11. GEMCITABINE HYDROCHLORIDE. [Suspect]
     Active Substance: GEMCITABINE HYDROCHLORIDE
     Indication: PANCREATIC CARCINOMA
     Dosage: 1000 UNK, UNK
     Route: 042
     Dates: start: 20131231, end: 20140106
  12. PACLITAXEL, ABI-007 PROTEIN BOUND [Suspect]
     Active Substance: PACLITAXEL
     Indication: PANCREATIC CARCINOMA
     Dosage: 125 MG/M2, UNK
     Route: 042
     Dates: start: 20131231, end: 20140106
  13. NIFEDIPINE. [Concomitant]
     Active Substance: NIFEDIPINE
     Dosage: UNK
     Dates: start: 20131118
  14. PROCHLORPERAZINE. [Concomitant]
     Active Substance: PROCHLORPERAZINE
     Dosage: UNK
     Dates: start: 20131209
  15. MUCINEX [Concomitant]
     Active Substance: GUAIFENESIN
     Dosage: UNK
  16. BENZONATATE. [Concomitant]
     Active Substance: BENZONATATE
     Dosage: UNK
     Dates: start: 20140115
  17. ASPIRIN. [Concomitant]
     Active Substance: ASPIRIN
  18. LIPITOR [Concomitant]
     Active Substance: ATORVASTATIN CALCIUM
     Dosage: UNK
     Dates: start: 20131118
  19. DEXAMETHASONE. [Concomitant]
     Active Substance: DEXAMETHASONE
     Dosage: UNK
     Dates: start: 20131209
  20. ONDANSETRON [Concomitant]
     Active Substance: ONDANSETRON
     Dosage: UNK
     Dates: start: 20131209
  21. ZETIA [Concomitant]
     Active Substance: EZETIMIBE
     Dosage: UNK
  22. ATENOLOL. [Concomitant]
     Active Substance: ATENOLOL
     Dosage: UNK
     Dates: start: 20131118
  23. INSULIN LISPRO [Concomitant]
     Active Substance: INSULIN LISPRO
     Dosage: UNK
  24. METFORMIN [Concomitant]
     Active Substance: METFORMIN HYDROCHLORIDE
  25. PEGFILGRASTIM [Concomitant]
     Active Substance: PEGFILGRASTIM
  26. CEFUROXIME. [Concomitant]
     Active Substance: CEFUROXIME
     Dosage: UNK
     Dates: start: 20140115

REACTIONS (8)
  - Rhinorrhoea [None]
  - Neutropenia [None]
  - Cholangitis [Not Recovered/Not Resolved]
  - Productive cough [None]
  - Sepsis [Not Recovered/Not Resolved]
  - Acute myocardial infarction [Unknown]
  - Respiratory tract congestion [None]
  - Diarrhoea [None]

NARRATIVE: CASE EVENT DATE: 20140116
